FAERS Safety Report 14300516 (Version 1)
Quarter: 2017Q4

REPORT INFORMATION
  Report Type: Spontaneous
  Country: US (occurrence: US)
  Receive Date: 20171218
  Receipt Date: 20171218
  Transmission Date: 20180321
  Serious: Yes (Hospitalization)
  Sender: FDA-Public Use
  Company Number: None

PATIENT
  Age: 68 Year
  Sex: Female
  Weight: 98.43 kg

DRUGS (13)
  1. IBRANCE [Suspect]
     Active Substance: PALBOCICLIB
     Indication: BREAST CANCER
     Dosage: ONCE A DAY X 21 DAYS
     Route: 048
     Dates: start: 20171129, end: 20171211
  2. TRAMADOL. [Concomitant]
     Active Substance: TRAMADOL
  3. OMEPRAZOLE. [Concomitant]
     Active Substance: OMEPRAZOLE
  4. FOLIC ACID. [Concomitant]
     Active Substance: FOLIC ACID
  5. METOPROLOL TARTRATE. [Concomitant]
     Active Substance: METOPROLOL TARTRATE
  6. FERREX [Concomitant]
     Active Substance: FERRIC POLYSACCHARIDE COMPLEX
  7. TYLENOL [Concomitant]
     Active Substance: ACETAMINOPHEN
  8. VITAMIN D3 [Concomitant]
     Active Substance: CHOLECALCIFEROL
  9. AZOPT [Concomitant]
     Active Substance: BRINZOLAMIDE
  10. TRAVATAN [Concomitant]
     Active Substance: TRAVOPROST
  11. BUMETANIDE. [Concomitant]
     Active Substance: BUMETANIDE
  12. VITAMIN B12 [Concomitant]
     Active Substance: CYANOCOBALAMIN
  13. NIFEDIPINE XL [Concomitant]
     Active Substance: NIFEDIPINE

REACTIONS (2)
  - Cholelithiasis [None]
  - Gallbladder operation [None]

NARRATIVE: CASE EVENT DATE: 20171211
